FAERS Safety Report 5839085-4 (Version None)
Quarter: 2008Q3

REPORT INFORMATION
  Report Type: 
  Country: None (occurrence: None)
  Receive Date: 20080808
  Receipt Date: 20080805
  Transmission Date: 20090109
  Serious: Yes (Other)
  Sender: FDA-Public Use
  Company Number: GB-GENENTECH-265847

PATIENT
  Sex: Female

DRUGS (1)
  1. RAPTIVA [Suspect]
     Indication: PSORIASIS
     Dosage: 0.9 UNK, 1/WEEK
     Route: 058
     Dates: start: 20080225

REACTIONS (2)
  - PEPTIC ULCER [None]
  - VOMITING [None]
